FAERS Safety Report 25924746 (Version 1)
Quarter: 2025Q4

REPORT INFORMATION
  Report Type: Spontaneous
  Country: US (occurrence: None)
  Receive Date: 20251013
  Receipt Date: 20251013
  Transmission Date: 20260118
  Serious: Yes (Other)
  Sender: FDA-CTU
  Company Number: None

PATIENT
  Age: 55 Year
  Sex: Female
  Weight: 65.25 kg

DRUGS (1)
  1. DESVENLAFAXINE SUCCINATE [Suspect]
     Active Substance: DESVENLAFAXINE SUCCINATE
     Dosage: 1 TABLET AT BEDTIME ORAL?
     Route: 048

REACTIONS (10)
  - Near death experience [None]
  - Drug withdrawal syndrome [None]
  - Nausea [None]
  - Syncope [None]
  - Intellectual disability [None]
  - Product communication issue [None]
  - Impaired driving ability [None]
  - Concussion [None]
  - Drug ineffective [None]
  - Product dose omission issue [None]

NARRATIVE: CASE EVENT DATE: 20251004
